FAERS Safety Report 12287100 (Version 1)
Quarter: 2016Q2

REPORT INFORMATION
  Report Type: Spontaneous
  Country: JP (occurrence: JP)
  Receive Date: 20160420
  Receipt Date: 20160420
  Transmission Date: 20160815
  Serious: Yes (Death)
  Sender: FDA-Public Use
  Company Number: JP-PFIZER INC-2016153059

PATIENT
  Age: 6 Decade
  Sex: Female

DRUGS (4)
  1. LYRICA [Suspect]
     Active Substance: PREGABALIN
  2. RISPERDAL [Suspect]
     Active Substance: RISPERIDONE
     Dosage: UNK
  3. SODIUM VALPROATE [Suspect]
     Active Substance: VALPROATE SODIUM
  4. BENZALIN [Suspect]
     Active Substance: NITRAZEPAM

REACTIONS (1)
  - Coronary artery stenosis [Fatal]
